FAERS Safety Report 15524376 (Version 2)
Quarter: 2018Q4

REPORT INFORMATION
  Report Type: Spontaneous
  Country: DE (occurrence: DE)
  Receive Date: 20181018
  Receipt Date: 20181212
  Transmission Date: 20190205
  Serious: Yes (Death)
  Sender: FDA-Public Use
  Company Number: DE-BIOVITRUM-2018DE1199

PATIENT
  Age: 6 Year
  Sex: Female

DRUGS (7)
  1. STEROIDS [Concomitant]
     Active Substance: UNSPECIFIED INGREDIENT
  2. KINERET [Suspect]
     Active Substance: ANAKINRA
     Indication: STILL^S DISEASE
     Dates: start: 20180430, end: 20180504
  3. CANAKINUMAB. [Concomitant]
     Active Substance: CANAKINUMAB
     Dates: start: 20180508
  4. VP16 [Concomitant]
     Active Substance: ETOPOSIDE
  5. TOCILIZUMAB. [Concomitant]
     Active Substance: TOCILIZUMAB
  6. CYA [Concomitant]
     Active Substance: CYCLOSPORINE
  7. ALEMTUZUMAB [Concomitant]
     Active Substance: ALEMTUZUMAB

REACTIONS (1)
  - Hepatic failure [Fatal]

NARRATIVE: CASE EVENT DATE: 20180511
